FAERS Safety Report 10569852 (Version 2)
Quarter: 2015Q2

REPORT INFORMATION
  Report Type: Spontaneous
  Country: GB (occurrence: GB)
  Receive Date: 20141107
  Receipt Date: 20150501
  Transmission Date: 20150821
  Serious: Yes (Other)
  Sender: FDA-Public Use
  Company Number: GB-ROCHE-1486085

PATIENT
  Age: 34 Year

DRUGS (6)
  1. MYCOPHENOLATE MOFETIL. [Suspect]
     Active Substance: MYCOPHENOLATE MOFETIL
     Indication: SCLERITIS
     Route: 065
  2. CICLOSPORIN [Suspect]
     Active Substance: CYCLOSPORINE
     Indication: ANEURYSM
  3. MYCOPHENOLATE MOFETIL. [Suspect]
     Active Substance: MYCOPHENOLATE MOFETIL
     Indication: ANEURYSM
  4. AZATHIOPRINE. [Suspect]
     Active Substance: AZATHIOPRINE
     Indication: ANEURYSM
  5. CICLOSPORIN [Suspect]
     Active Substance: CYCLOSPORINE
     Indication: SCLERITIS
     Route: 065
  6. AZATHIOPRINE. [Suspect]
     Active Substance: AZATHIOPRINE
     Indication: SCLERITIS
     Route: 065

REACTIONS (8)
  - Disease progression [Unknown]
  - Peripheral ischaemia [Unknown]
  - Thrombosis in device [Unknown]
  - Post procedural complication [Unknown]
  - Aneurysm [Recovered/Resolved with Sequelae]
  - Scleritis [Recovering/Resolving]
  - Femoral artery aneurysm [Recovered/Resolved with Sequelae]
  - Peripheral artery aneurysm [Unknown]
